FAERS Safety Report 6185454-5 (Version None)
Quarter: 2009Q2

REPORT INFORMATION
  Report Type: 
  Country: None (occurrence: None)
  Receive Date: 20090501
  Receipt Date: 20090210
  Transmission Date: 20091009
  Serious: Yes (Other)
  Sender: FDA-Public Use
  Company Number: 182580USA

PATIENT
  Age: 60 Year
  Sex: Female

DRUGS (1)
  1. ZOLPIDEM TARTRATE [Suspect]
     Dosage: 5 MG (5 MG,1 IN 1 D),ORAL
     Route: 048
     Dates: start: 20081207, end: 20081213

REACTIONS (4)
  - DYSKINESIA [None]
  - DYSPHAGIA [None]
  - MENTAL IMPAIRMENT [None]
  - MUSCULAR WEAKNESS [None]
